FAERS Safety Report 4743055-7 (Version None)
Quarter: 2005Q3

REPORT INFORMATION
  Report Type: 
  Country: None (occurrence: None)
  Receive Date: 20050811
  Receipt Date: 20050801
  Transmission Date: 20060218
  Serious: Yes (Life-Threatening, Hospitalization)
  Sender: FDA-Public Use
  Company Number: 2005-130924-NL

PATIENT
  Age: 40 Year
  Sex: Male

DRUGS (4)
  1. NANDROLONE DECANOATE [Suspect]
  2. DIANABOL [Suspect]
  3. EPHEDRA [Suspect]
  4. GAMMA-HYDROXYBUTYRATE [Suspect]

REACTIONS (48)
  - ABDOMINAL DISTENSION [None]
  - ACNE [None]
  - ANOREXIA [None]
  - ARTHRALGIA [None]
  - ASCITES [None]
  - BREATH SOUNDS ABNORMAL [None]
  - CARDIAC FAILURE CONGESTIVE [None]
  - CARDIAC MURMUR [None]
  - CARDIOMEGALY [None]
  - CHROMATURIA [None]
  - CONGESTIVE CARDIOMYOPATHY [None]
  - DYSPNOEA AT REST [None]
  - DYSPNOEA EXACERBATED [None]
  - DYSPNOEA PAROXYSMAL NOCTURNAL [None]
  - ELECTROCARDIOGRAM POOR R-WAVE PROGRESSION [None]
  - ENCEPHALOPATHY [None]
  - FAECES PALE [None]
  - FATIGUE [None]
  - HEART RATE INCREASED [None]
  - HEPATIC CONGESTION [None]
  - HEPATIC FAILURE [None]
  - HEPATIC TRAUMA [None]
  - HEPATITIS ACUTE [None]
  - HEPATOJUGULAR REFLUX [None]
  - HEPATOMEGALY [None]
  - HEPATOTOXICITY [None]
  - INSOMNIA [None]
  - IRRITABILITY [None]
  - JUGULAR VEIN DISTENSION [None]
  - LEFT VENTRICULAR END-DIASTOLIC PRESSURE INCREASED [None]
  - MITRAL VALVE INCOMPETENCE [None]
  - MUSCLE SPASMS [None]
  - MYALGIA [None]
  - NAUSEA [None]
  - OCULAR ICTERUS [None]
  - ORTHOPNOEA [None]
  - PERICARDIAL EFFUSION [None]
  - PLEURAL EFFUSION [None]
  - PRODUCTIVE COUGH [None]
  - PULMONARY CONGESTION [None]
  - RALES [None]
  - RENAL FAILURE [None]
  - RESPIRATORY RATE INCREASED [None]
  - SINUS TACHYCARDIA [None]
  - TRICUSPID VALVE INCOMPETENCE [None]
  - VENTRICULAR EXTRASYSTOLES [None]
  - VOMITING [None]
  - WEIGHT INCREASED [None]
